FAERS Safety Report 7199473-3 (Version None)
Quarter: 2010Q4

REPORT INFORMATION
  Report Type: 
  Country: None (occurrence: None)
  Receive Date: 20101228
  Receipt Date: 20101215
  Transmission Date: 20110411
  Serious: Yes (Other)
  Sender: FDA-Public Use
  Company Number: CA-CELGENE-028-21880-10070514

PATIENT
  Age: 55 Year

DRUGS (1)
  1. REVLIMID [Suspect]
     Route: 048
     Dates: start: 20060307

REACTIONS (1)
  - MYELODYSPLASTIC SYNDROME [None]
